FAERS Safety Report 8878930 (Version 3)
Quarter: 2012Q4

REPORT INFORMATION
  Report Type: Report from Study
  Country: US (occurrence: US)
  Receive Date: 20121026
  Receipt Date: 20121206
  Transmission Date: 20130627
  Serious: Yes (Other)
  Sender: FDA-Public Use
  Company Number: US-ABBOTT-12P-163-0995844-00

PATIENT
  Age: 80 Year
  Sex: Female
  Weight: 50.39 kg

DRUGS (10)
  1. HUMIRA [Suspect]
     Indication: COLITIS ULCERATIVE
     Dosage: loading dose
     Dates: start: 20120927, end: 20120927
  2. HUMIRA [Suspect]
     Dosage: 2nd loading dose
     Dates: start: 20121011, end: 20121011
  3. HUMIRA [Suspect]
  4. COREG [Concomitant]
  5. FLONASE [Concomitant]
     Indication: PRODUCT USED FOR UNKNOWN INDICATION
     Dosage: once daily
  6. IMODIUM [Concomitant]
     Indication: PRODUCT USED FOR UNKNOWN INDICATION
     Dosage: uses it almost every day
  7. TYLENOL EXTRA STRENGTH [Concomitant]
     Indication: PRODUCT USED FOR UNKNOWN INDICATION
  8. XANAX [Concomitant]
     Indication: PRODUCT USED FOR UNKNOWN INDICATION
     Dosage: one three times daily as needed
  9. CALCIUM + VITAMIN D [Concomitant]
     Indication: PRODUCT USED FOR UNKNOWN INDICATION
  10. MERCAPTOPURINE [Concomitant]
     Indication: PRODUCT USED FOR UNKNOWN INDICATION

REACTIONS (4)
  - Gastric ulcer [Not Recovered/Not Resolved]
  - Colitis [Unknown]
  - Vomiting [Unknown]
  - Nausea [Unknown]
